FAERS Safety Report 23252235 (Version 2)
Quarter: 2023Q4

REPORT INFORMATION
  Report Type: Spontaneous
  Country: FR (occurrence: FR)
  Receive Date: 20231201
  Receipt Date: 20231219
  Transmission Date: 20240109
  Serious: Yes (Other)
  Sender: FDA-Public Use
  Company Number: None

PATIENT
  Age: 30 Year
  Sex: Female
  Weight: 58 kg

DRUGS (21)
  1. ACETAMINOPHEN [Suspect]
     Active Substance: ACETAMINOPHEN
     Indication: Product used for unknown indication
     Dosage: 1 G
  2. ONDANSETRON [Suspect]
     Active Substance: ONDANSETRON
     Indication: Prophylaxis
     Dosage: 3 DF, QD?FOA : UNKNOWN
     Route: 042
     Dates: start: 20230629, end: 20230703
  3. PIPERACILLIN [Suspect]
     Active Substance: PIPERACILLIN
     Indication: Sepsis
     Dosage: 16 G, QD?FOA: UNKNOWN
     Route: 042
     Dates: end: 20230706
  4. BASILIXIMAB [Suspect]
     Active Substance: BASILIXIMAB
     Indication: Prophylaxis
     Dosage: POWDER AND SOLVENT POUR SOLUTION INJECTABLE OR POUR PERFUSION.?FOA : UNKNOWN
     Route: 042
     Dates: start: 20230629, end: 20230703
  5. CEFTRIAXONE [Suspect]
     Active Substance: CEFTRIAXONE\CEFTRIAXONE SODIUM
     Indication: Sepsis
     Dosage: 1000 MG, TOTAL?FOA : UNKNOWN
     Route: 042
     Dates: end: 20230703
  6. PIPERACILLIN SODIUM\TAZOBACTAM SODIUM [Suspect]
     Active Substance: PIPERACILLIN SODIUM\TAZOBACTAM SODIUM
     Indication: Sepsis
     Dosage: 16 G, QD?FOA : UNKNOWN
     Route: 042
     Dates: end: 20230706
  7. LANSOPRAZOLE [Suspect]
     Active Substance: LANSOPRAZOLE
     Indication: Product used for unknown indication
     Dosage: 1 TAB IN THE EVENING?FOA : UNKNOWN
  8. CALCIUM PHOSPHATE, DIBASIC, ANHYDROUS\MAGNESIUM GLYCEROPHOSPHATE\PHOSP [Suspect]
     Active Substance: CALCIUM PHOSPHATE, DIBASIC, ANHYDROUS\MAGNESIUM GLYCEROPHOSPHATE\PHOSPHORIC ACID\SODIUM PHOSPHATE, D
     Indication: Product used for unknown indication
     Dosage: 100GTTX2/D?FOA : UNKNOWN
  9. PROGRAF [Suspect]
     Active Substance: TACROLIMUS
     Indication: Product used for unknown indication
     Dosage: 1 TAB IN THE MORNING?FOA : TABLET
  10. PREDNISONE [Suspect]
     Active Substance: PREDNISONE
     Indication: Prophylaxis
     Dosage: 55 MG, QD; 1 TAB IN THE MORNING?FOA : TABLET
     Dates: start: 20230629
  11. OXYCODONE [Suspect]
     Active Substance: OXYCODONE
     Indication: Pain
     Dosage: 5MG IF NECESSARY (LAST TAKEN ON 08/07)?FOA : UNKNOWN
     Route: 048
     Dates: end: 20230708
  12. AMPHOTERICIN B [Suspect]
     Active Substance: AMPHOTERICIN B
     Indication: Product used for unknown indication
     Dosage: 1TSP.X3/D?FOA : UNKNOWN
  13. AMIKACIN [Suspect]
     Active Substance: AMIKACIN
     Indication: Sepsis
     Dosage: 850 MG, TOTAL?FOA : UNKNOWN
     Route: 042
     Dates: end: 20230703
  14. BISOPROLOL [Suspect]
     Active Substance: BISOPROLOL\BISOPROLOL FUMARATE
     Indication: Product used for unknown indication
     Dosage: 2.5 MG, QD?FOA : UNKNOWN
  15. PHLOROGLUCINOL [Suspect]
     Active Substance: PHLOROGLUCINOL
     Indication: Pain
     Dosage: 80 MG ?FOA : UNKNOWN
     Route: 048
     Dates: end: 20230703
  16. AMLODIPINE BESYLATE [Suspect]
     Active Substance: AMLODIPINE BESYLATE
     Indication: Hypertension
     Dosage: 10 MG, QD?FOA : UNKNOWN
     Route: 048
     Dates: start: 20230629, end: 20230728
  17. LOVENOX [Suspect]
     Active Substance: ENOXAPARIN SODIUM
     Indication: Prophylaxis
     Dosage: 4 000 IU ANTI-XA/0.4 ML, SOLUTION INJECTABLE IN CARTOUCHE?FOA : SOLUTION FOR INJECTION
     Route: 058
     Dates: start: 20230629, end: 20230714
  18. OXYBUTYNIN [Suspect]
     Active Substance: OXYBUTYNIN
     Indication: Pollakiuria
     Dosage: 5 MG?FOA : UNKNOWN
     Route: 048
     Dates: end: 20230704
  19. CELLCEPT [Suspect]
     Active Substance: MYCOPHENOLATE MOFETIL
     Indication: Product used for unknown indication
     Dosage: 1 TAB IN THE MORNING AND 1 TAB IN THE EVENING?FOA : UNKNOWN
  20. MOVICOL [Suspect]
     Active Substance: POLYETHYLENE GLYCOL 3350\POTASSIUM CHLORIDE\SODIUM BICARBONATE\SODIUM CHLORIDE
     Indication: Product used for unknown indication
     Dosage: 1 TO 2 SACHETS/DAY IF NECESSARY?FOA : UNKNOWN
  21. TAZOBACTAM [Suspect]
     Active Substance: TAZOBACTAM
     Indication: Sepsis
     Route: 042
     Dates: end: 20230706

REACTIONS (1)
  - Hyperacusis [Recovering/Resolving]

NARRATIVE: CASE EVENT DATE: 20230701
